FAERS Safety Report 22598122 (Version 1)
Quarter: 2023Q2

REPORT INFORMATION
  Report Type: Spontaneous
  Country: US (occurrence: None)
  Receive Date: 20230614
  Receipt Date: 20230614
  Transmission Date: 20230721
  Serious: Yes (Other)
  Sender: FDA-Public Use
  Company Number: US-MDD US Operations-MDD202211-003919

PATIENT
  Age: 77 Year
  Sex: Female

DRUGS (2)
  1. APOKYN [Suspect]
     Active Substance: APOMORPHINE HYDROCHLORIDE
     Indication: Parkinson^s disease
  2. CORTISONE [Concomitant]
     Active Substance: CORTISONE
     Indication: Arthritis
     Dosage: NOT PROVIDED

REACTIONS (4)
  - Fall [Unknown]
  - Facial bones fracture [Unknown]
  - Skin abrasion [Unknown]
  - Joint injury [Unknown]

NARRATIVE: CASE EVENT DATE: 20221001
